FAERS Safety Report 11282572 (Version 2)
Quarter: 2015Q3

REPORT INFORMATION
  Report Type: Spontaneous
  Country: GB (occurrence: GB)
  Receive Date: 20150720
  Receipt Date: 20150803
  Transmission Date: 20151125
  Serious: Yes (Hospitalization)
  Sender: FDA-Public Use
  Company Number: GB-AUROBINDO-AUR-APL-2015-06343

PATIENT
  Age: 69 Year
  Sex: Female

DRUGS (2)
  1. CO-AMOXICLAV 500 MG /125 MG FILM-COATED TABLETS [Suspect]
     Active Substance: AMOXICILLIN\CLAVULANIC ACID
     Indication: SEPSIS
     Dosage: 625 MG, 3 TIMES A DAY
     Route: 048
  2. CIPROFLOXACIN TABLETS 500MG [Suspect]
     Active Substance: CIPROFLOXACIN
     Indication: SEPSIS
     Dosage: 500 MG, TWO TIMES A DAY
     Route: 048

REACTIONS (2)
  - Rash maculo-papular [Recovered/Resolved]
  - Cutaneous lupus erythematosus [Unknown]

NARRATIVE: CASE EVENT DATE: 20140906
